FAERS Safety Report 6645355-2 (Version None)
Quarter: 2010Q1

REPORT INFORMATION
  Report Type: 
  Country: None (occurrence: None)
  Receive Date: 20100322
  Receipt Date: 20100315
  Transmission Date: 20100710
  Serious: Yes (Hospitalization)
  Sender: FDA-Public Use
  Company Number: CN-ROCHE-691505

PATIENT
  Sex: Male
  Weight: 65 kg

DRUGS (2)
  1. PEG-INTERFERON ALFA 2A (RO 25-8310) [Suspect]
     Dosage: UNIT: 0.5 ML
     Route: 030
     Dates: start: 20090907
  2. RIBAVIRIN [Suspect]
     Route: 048
     Dates: start: 20090907

REACTIONS (3)
  - ACIDOSIS [None]
  - BLOOD GLUCOSE INCREASED [None]
  - KETOACIDOSIS [None]
